FAERS Safety Report 4910941-4 (Version None)
Quarter: 2006Q1

REPORT INFORMATION
  Report Type: 
  Country: None (occurrence: None)
  Receive Date: 20060214
  Receipt Date: 20050823
  Transmission Date: 20060701
  Serious: Yes (Hospitalization, Other)
  Sender: FDA-Public Use
  Company Number: US-MERCK-0508USA03916

PATIENT
  Age: 79 Year
  Sex: Female
  Weight: 61 kg

DRUGS (19)
  1. VIOXX [Suspect]
     Indication: RHEUMATOID ARTHRITIS
     Route: 048
     Dates: end: 20030923
  2. HYDROCHLOROTHIAZIDE [Concomitant]
     Indication: HYPERTENSION
     Route: 065
     Dates: start: 19980101
  3. LOTENSIN [Concomitant]
     Route: 065
     Dates: start: 20000101
  4. PRAVACHOL [Concomitant]
     Route: 065
  5. PROZAC [Concomitant]
     Route: 065
     Dates: start: 19980101, end: 20020510
  6. PREDNISONE [Concomitant]
     Indication: PULMONARY CONGESTION
     Route: 065
  7. CALCIUM (UNSPECIFIED) [Concomitant]
     Route: 065
  8. VITAMIN E [Concomitant]
     Route: 065
  9. VITAMINS (UNSPECIFIED) [Concomitant]
     Route: 065
  10. AMITRIPTYLINE HYDROCHLORIDE [Concomitant]
     Indication: MUSCLE RELAXANT THERAPY
     Route: 065
  11. TOPROL-XL [Concomitant]
     Route: 065
  12. VICODIN [Concomitant]
     Indication: PAIN
     Route: 065
  13. FOSAMAX [Concomitant]
     Indication: OSTEOPOROSIS
     Route: 065
  14. EFFEXOR [Concomitant]
     Route: 065
     Dates: start: 19980101
  15. GEODON [Concomitant]
     Route: 065
     Dates: start: 20000101
  16. LOVASTATIN [Concomitant]
     Route: 065
     Dates: start: 19981101
  17. DAYPRO [Concomitant]
     Route: 065
  18. CLARITIN [Concomitant]
     Route: 065
  19. PLAQUENIL [Concomitant]
     Route: 065

REACTIONS (17)
  - ABDOMINAL PAIN [None]
  - ANXIETY [None]
  - AUTOIMMUNE DISORDER [None]
  - BLOOD DISORDER [None]
  - CEREBROVASCULAR ACCIDENT [None]
  - CHEST PAIN [None]
  - DEPRESSION [None]
  - DISTURBANCE IN ATTENTION [None]
  - IRON DEFICIENCY ANAEMIA [None]
  - LACERATION [None]
  - NERVOUS SYSTEM DISORDER [None]
  - PERIARTHRITIS [None]
  - PNEUMONIA [None]
  - RENAL DISORDER [None]
  - SLEEP DISORDER [None]
  - SYSTEMIC LUPUS ERYTHEMATOSUS [None]
  - UPPER LIMB FRACTURE [None]
